FAERS Safety Report 10172887 (Version 3)
Quarter: 2014Q2

REPORT INFORMATION
  Report Type: Spontaneous
  Country: JP (occurrence: JP)
  Receive Date: 20140515
  Receipt Date: 20140618
  Transmission Date: 20141212
  Serious: No
  Sender: FDA-Public Use
  Company Number: JP-EISAI INC-E3810-07072-SPO-JP

PATIENT
  Age: 60 Year
  Sex: Male

DRUGS (3)
  1. RABECURE [Suspect]
     Indication: HELICOBACTER INFECTION
     Route: 048
     Dates: start: 20140430, end: 20140430
  2. CLARITHROMYCIN [Suspect]
     Indication: HELICOBACTER INFECTION
     Route: 048
     Dates: start: 20140430, end: 20140430
  3. AMOXICILLIN [Suspect]
     Indication: HELICOBACTER INFECTION
     Route: 048
     Dates: start: 20140430, end: 20140430

REACTIONS (2)
  - Blood pressure increased [Recovered/Resolved]
  - Palpitations [Recovered/Resolved]
